FAERS Safety Report 7162753-1 (Version None)
Quarter: 2010Q4

REPORT INFORMATION
  Report Type: 
  Country: None (occurrence: None)
  Receive Date: 20101215
  Receipt Date: 20091214
  Transmission Date: 20110411
  Serious: Yes (Other)
  Sender: FDA-Public Use
  Company Number: US-PFIZER INC-2009310726

PATIENT
  Sex: Female
  Weight: 65.76 kg

DRUGS (1)
  1. CLEOCIN [Suspect]
     Indication: URINARY TRACT INFECTION
     Route: 042
     Dates: start: 20080601, end: 20090101

REACTIONS (1)
  - PARALYSIS [None]
